FAERS Safety Report 7303387-5 (Version None)
Quarter: 2011Q1

REPORT INFORMATION
  Report Type: 
  Country: None (occurrence: None)
  Receive Date: 20110221
  Receipt Date: 20110208
  Transmission Date: 20110831
  Serious: Yes (Other)
  Sender: FDA-Public Use
  Company Number: US-ELI_LILLY_AND_COMPANY-US201010006027

PATIENT
  Sex: Female

DRUGS (9)
  1. TOPAMAX [Concomitant]
  2. EVAMIST [Concomitant]
  3. SYMBICORT [Concomitant]
  4. FORTEO [Suspect]
     Indication: OSTEOPOROSIS
     Dosage: 20 UG, DAILY (1/D)
     Dates: start: 20101001
  5. SEROQUEL [Concomitant]
  6. LEVOTHYROXINE [Concomitant]
  7. VITAMIN D [Concomitant]
  8. CYMBALTA [Concomitant]
  9. WELCHOL [Concomitant]

REACTIONS (6)
  - CARTILAGE NEOPLASM [None]
  - HEART RATE INCREASED [None]
  - INJECTION SITE HAEMATOMA [None]
  - MUSCLE SPASMS [None]
  - CONTUSION [None]
  - INJECTION SITE PAIN [None]
